FAERS Safety Report 9988209 (Version 3)
Quarter: 2014Q1

REPORT INFORMATION
  Report Type: Report from Study
  Country: AU (occurrence: AU)
  Receive Date: 20140309
  Receipt Date: 20140326
  Transmission Date: 20141002
  Serious: Yes (Hospitalization, Other)
  Sender: FDA-Public Use
  Company Number: PHHY2014AU028347

PATIENT
  Age: 90 Year
  Sex: Female

DRUGS (8)
  1. ACLASTA [Suspect]
     Dosage: 5 MG, UNK
     Route: 042
     Dates: start: 20091128
  2. ACLASTA [Suspect]
     Dosage: 5 MG, UNK
     Route: 042
     Dates: start: 20101123
  3. ACLASTA [Suspect]
     Dosage: 5 MG, UNK
     Route: 042
     Dates: start: 20120116
  4. ACLASTA [Suspect]
     Dosage: 5 MG, UNK
     Route: 042
     Dates: start: 20130212
  5. ACIMAX [Concomitant]
     Indication: GASTROOESOPHAGEAL REFLUX DISEASE
     Dosage: 20 MG, DAILY
     Route: 048
  6. THYROXINE [Concomitant]
     Indication: HYPOTHYROIDISM
     Dosage: 50 MG, DAILY
     Route: 048
  7. TRITACE [Concomitant]
     Indication: HYPERTENSION
     Dosage: 1.25 MG, DAILY
     Route: 048
  8. SYMBICORT [Concomitant]
     Indication: ASTHMA
     Dosage: UNK UKN, BID
     Route: 055

REACTIONS (1)
  - Lower limb fracture [Unknown]
